FAERS Safety Report 25667995 (Version 1)
Quarter: 2025Q3

REPORT INFORMATION
  Report Type: Spontaneous
  Country: CA (occurrence: None)
  Receive Date: 20250812
  Receipt Date: 20250812
  Transmission Date: 20251020
  Serious: Yes (Death, Hospitalization, Other)
  Sender: ORION
  Company Number: CA-Orion Corporation ORION PHARMA-TREX2025-0132

PATIENT
  Age: 84 Year
  Sex: Female
  Weight: 50 kg

DRUGS (22)
  1. METHOTREXATE [Suspect]
     Active Substance: METHOTREXATE
     Indication: Rheumatoid arthritis
  2. VYNDAMAX [Suspect]
     Active Substance: TAFAMIDIS
     Indication: Acquired ATTR amyloidosis
  3. AMLODIPINE [Concomitant]
     Active Substance: AMLODIPINE BESYLATE
  4. DOCUSATE SODIUM [Concomitant]
     Active Substance: DOCUSATE SODIUM
  5. DULOXETINE HYDROCHLORIDE [Concomitant]
     Active Substance: DULOXETINE HYDROCHLORIDE
  6. FENTANYL [Concomitant]
     Active Substance: FENTANYL
  7. FOLIC ACID [Concomitant]
     Active Substance: FOLIC ACID
  8. FUROSEMIDE [Concomitant]
     Active Substance: FUROSEMIDE
  9. MIRTAZAPINE [Concomitant]
     Active Substance: MIRTAZAPINE
  10. PRAVASTATIN SODIUM [Concomitant]
     Active Substance: PRAVASTATIN SODIUM
  11. TRAZODONE [Concomitant]
     Active Substance: TRAZODONE HYDROCHLORIDE
  12. VALSARTAN [Concomitant]
     Active Substance: VALSARTAN
  13. HYDROXYCHLOROQUINE [Concomitant]
     Active Substance: HYDROXYCHLOROQUINE
  14. CALCIUM\VITAMIN D [Concomitant]
     Active Substance: CALCIUM\VITAMIN D
  15. DEXILANT [Concomitant]
     Active Substance: DEXLANSOPRAZOLE
  16. FERROUS SULFATE [Concomitant]
     Active Substance: FERROUS SULFATE
  17. EDOXABAN TOSYLATE [Concomitant]
     Active Substance: EDOXABAN TOSYLATE
  18. MUPIROCIN [Concomitant]
     Active Substance: MUPIROCIN
  19. PREDNISONE [Concomitant]
     Active Substance: PREDNISONE
  20. PROLIA [Concomitant]
     Active Substance: DENOSUMAB
  21. SIMPONI [Concomitant]
     Active Substance: GOLIMUMAB
  22. TYLENOL [Concomitant]
     Active Substance: ACETAMINOPHEN

REACTIONS (13)
  - Dehydration [Fatal]
  - Oral disorder [Fatal]
  - General physical health deterioration [Fatal]
  - Fatigue [Fatal]
  - Asthenia [Fatal]
  - Hypophagia [Fatal]
  - Oral pain [Fatal]
  - Weight decreased [Fatal]
  - Acute kidney injury [Fatal]
  - Pancytopenia [Fatal]
  - Anaemia [Fatal]
  - Pneumonia [Fatal]
  - Altered state of consciousness [Fatal]
